FAERS Safety Report 5284227-5 (Version None)
Quarter: 2007Q2

REPORT INFORMATION
  Report Type: 
  Country: None (occurrence: None)
  Receive Date: 20070403
  Receipt Date: 20070330
  Transmission Date: 20071010
  Serious: Yes (Life-Threatening, Other)
  Sender: FDA-Public Use
  Company Number: PHNU2007DE01399

PATIENT
  Age: 8 Year
  Sex: Male
  Weight: 21.2 kg

DRUGS (1)
  1. TRILEPTAL [Suspect]
     Indication: EPILEPSY
     Dosage: 300 MG, BID
     Route: 048
     Dates: start: 20070114, end: 20070206

REACTIONS (7)
  - ALANINE AMINOTRANSFERASE INCREASED [None]
  - ASPARTATE AMINOTRANSFERASE INCREASED [None]
  - BLOOD PHOSPHORUS DECREASED [None]
  - C-REACTIVE PROTEIN INCREASED [None]
  - GRANULOCYTOPENIA [None]
  - LEUKOPENIA [None]
  - PYREXIA [None]
